FAERS Safety Report 10482781 (Version 2)
Quarter: 2014Q3

REPORT INFORMATION
  Report Type: Spontaneous
  Country: US (occurrence: US)
  Receive Date: 20140929
  Receipt Date: 20140929
  Transmission Date: 20150326
  Serious: No
  Sender: FDA-Public Use
  Company Number: US-GILEAD-2014-0114377

PATIENT
  Age: 53 Year
  Sex: Female

DRUGS (17)
  1. CHERATUSSIN AC [Concomitant]
     Active Substance: CODEINE PHOSPHATE\GUAIFENESIN
  2. SYMBICORT [Concomitant]
     Active Substance: BUDESONIDE\FORMOTEROL FUMARATE DIHYDRATE
  3. FUROSEMIDE. [Concomitant]
     Active Substance: FUROSEMIDE
  4. PROTONIX [Concomitant]
     Active Substance: PANTOPRAZOLE SODIUM
  5. PROAIR HFA [Concomitant]
     Active Substance: ALBUTEROL SULFATE
  6. ADEMPAS [Concomitant]
     Active Substance: RIOCIGUAT
     Dates: start: 20140906, end: 20140915
  7. PROAIR HFA [Concomitant]
     Active Substance: ALBUTEROL SULFATE
  8. KLOR-CON [Concomitant]
     Active Substance: POTASSIUM CHLORIDE
  9. ZANTAC [Concomitant]
     Active Substance: RANITIDINE HYDROCHLORIDE
  10. ADEMPAS [Concomitant]
     Active Substance: RIOCIGUAT
  11. PREDNISONE. [Concomitant]
     Active Substance: PREDNISONE
  12. PLAQUENIL [Concomitant]
     Active Substance: HYDROXYCHLOROQUINE SULFATE
  13. PLAQUENIL [Concomitant]
     Active Substance: HYDROXYCHLOROQUINE SULFATE
  14. LETAIRIS [Suspect]
     Active Substance: AMBRISENTAN
     Indication: PULMONARY HYPERTENSION
     Dosage: 10 MG, QD
     Route: 065
     Dates: start: 20140207
  15. BACLOFEN. [Concomitant]
     Active Substance: BACLOFEN
  16. DIGOXIN. [Concomitant]
     Active Substance: DIGOXIN
  17. AZATHIOPRINE. [Concomitant]
     Active Substance: AZATHIOPRINE

REACTIONS (3)
  - Headache [Unknown]
  - Dyspnoea [Unknown]
  - Dizziness [Unknown]
